FAERS Safety Report 8822784 (Version 3)
Quarter: 2013Q1

REPORT INFORMATION
  Report Type: Report from Study
  Country: JP (occurrence: JP)
  Receive Date: 20121003
  Receipt Date: 20130205
  Transmission Date: 20140127
  Serious: Yes (Other)
  Sender: FDA-Public Use
  Company Number: JP-VERTEX PHARMACEUTICAL INC.-AE-2012-010960

PATIENT
  Age: 70 Year
  Sex: Female

DRUGS (11)
  1. VX-950 (TELAPREVIR) [Suspect]
     Indication: CHRONIC HEPATITIS C
     Dosage: 2250 MG, QD
     Route: 048
     Dates: start: 20120718, end: 20120720
  2. VX-950 (TELAPREVIR) [Suspect]
     Dosage: 1500 MG, QD
     Route: 048
     Dates: start: 20120727, end: 20121007
  3. REBETOL [Suspect]
     Indication: CHRONIC HEPATITIS C
     Dosage: 600 MG, QD
     Route: 048
     Dates: start: 20120718, end: 20120730
  4. REBETOL [Suspect]
     Dosage: 200 MG, QD
     Route: 048
     Dates: start: 20120730
  5. REBETOL [Suspect]
     Dosage: 100 MG, QD
     Route: 048
     Dates: start: 20120827, end: 20120910
  6. REBETOL [Suspect]
     Dosage: 200 MG/3 DAYS
     Route: 048
     Dates: start: 20120911, end: 20121105
  7. REBETOL [Suspect]
     Dosage: 200 MG/2 DAYS
     Route: 048
     Dates: start: 20121105, end: 20121217
  8. REBETOL [Suspect]
     Dosage: 200 MG, QD
     Route: 048
     Dates: start: 20121217, end: 20130117
  9. REBETOL [Suspect]
     Dosage: UNK
  10. PEGINTRON                          /01543001/ [Suspect]
     Indication: CHRONIC HEPATITIS C
     Dosage: 1.5 ?G/KG, QW
     Route: 058
     Dates: start: 20120718, end: 20121231
  11. FERROMIA                           /00023520/ [Concomitant]
     Route: 048

REACTIONS (8)
  - Renal disorder [Recovered/Resolved]
  - Blood creatinine increased [Not Recovered/Not Resolved]
  - Drug eruption [Recovered/Resolved]
  - Erythema [Not Recovered/Not Resolved]
  - Blood uric acid increased [Not Recovered/Not Resolved]
  - Vomiting [Not Recovered/Not Resolved]
  - Nausea [Not Recovered/Not Resolved]
  - Pruritus [Not Recovered/Not Resolved]
